FAERS Safety Report 4987552-8 (Version None)
Quarter: 2006Q2

REPORT INFORMATION
  Report Type: 
  Country: None (occurrence: None)
  Receive Date: 20060501
  Receipt Date: 20050218
  Transmission Date: 20061013
  Serious: Yes (Hospitalization)
  Sender: FDA-Public Use
  Company Number: US-MERCK-0503USA00632

PATIENT
  Age: 65 Year
  Sex: Male

DRUGS (16)
  1. VIOXX [Suspect]
     Route: 048
     Dates: end: 20021021
  2. VIOXX [Suspect]
     Route: 048
     Dates: start: 20021022
  3. PLAVIX [Concomitant]
     Route: 048
  4. RAMIPRIL [Concomitant]
     Route: 048
  5. HYDROCHLOROTHIAZIDE [Concomitant]
     Route: 048
  6. OXYCODONE [Concomitant]
     Route: 048
  7. FLEXERIL [Concomitant]
     Route: 048
  8. ELAVIL [Concomitant]
     Route: 048
  9. ZOCOR [Concomitant]
     Route: 048
  10. SOMA [Concomitant]
     Route: 048
  11. PREVACID [Concomitant]
     Route: 048
  12. OXYCONTIN [Concomitant]
     Route: 048
  13. AMBIEN [Concomitant]
     Route: 048
  14. TYLENOL (CAPLET) [Concomitant]
     Indication: PAIN
     Route: 048
  15. ALTACE [Concomitant]
     Route: 048
  16. ASPIRIN [Concomitant]
     Route: 048

REACTIONS (20)
  - ANGINA PECTORIS [None]
  - ANORGASMIA [None]
  - ANXIETY [None]
  - ARTERIOSCLEROSIS CORONARY ARTERY [None]
  - BURSITIS [None]
  - CHEST PAIN [None]
  - CORONARY ARTERY OCCLUSION [None]
  - CORONARY ARTERY STENOSIS [None]
  - DYSPNOEA [None]
  - ELECTROCARDIOGRAM T WAVE INVERSION [None]
  - ERECTILE DYSFUNCTION [None]
  - GASTROOESOPHAGEAL REFLUX DISEASE [None]
  - HYPERLIPIDAEMIA [None]
  - INSOMNIA [None]
  - MYOCARDIAL ISCHAEMIA [None]
  - NIGHTMARE [None]
  - PLEURAL EFFUSION [None]
  - PRODUCTIVE COUGH [None]
  - TENDON RUPTURE [None]
  - VENTRICULAR HYPOKINESIA [None]
